FAERS Safety Report 7157683-5 (Version None)
Quarter: 2010Q4

REPORT INFORMATION
  Report Type: 
  Country: None (occurrence: None)
  Receive Date: 20101214
  Receipt Date: 20100315
  Transmission Date: 20110411
  Serious: No
  Sender: FDA-Public Use
  Company Number: US-ASTRAZENECA-2010SE11260

PATIENT
  Age: 720 Month
  Sex: Male
  Weight: 93 kg

DRUGS (3)
  1. CRESTOR [Suspect]
     Indication: BLOOD CHOLESTEROL INCREASED
     Route: 048
     Dates: start: 20091001
  2. NEXIUM [Suspect]
     Route: 048
  3. TRILIPIX [Suspect]
     Route: 048
     Dates: start: 20090101

REACTIONS (1)
  - VIITH NERVE PARALYSIS [None]
